FAERS Safety Report 23655072 (Version 5)
Quarter: 2024Q3

REPORT INFORMATION
  Report Type: Report from Study
  Country: CN (occurrence: CN)
  Receive Date: 20240320
  Receipt Date: 20240906
  Transmission Date: 20241017
  Serious: Yes (Death, Life-Threatening, Hospitalization)
  Sender: PFIZER
  Company Number: CN-PFIZER INC-PV202400034298

PATIENT
  Age: 58 Year
  Sex: Female
  Weight: 66.5 kg

DRUGS (10)
  1. CYTARABINE [Suspect]
     Active Substance: CYTARABINE
     Indication: Acute myeloid leukaemia
     Dosage: 1680 MG, 1X/DAY
     Route: 041
     Dates: start: 20231228, end: 20240101
  2. CYTARABINE [Suspect]
     Active Substance: CYTARABINE
     Dosage: 3340 MG, 2X/DAY (Q12H)
     Route: 041
     Dates: start: 20240206, end: 20240206
  3. CYTARABINE [Suspect]
     Active Substance: CYTARABINE
     Dosage: 3340 MG, 2X/DAY (Q12H)
     Route: 041
     Dates: start: 20240208, end: 20240208
  4. CYTARABINE [Suspect]
     Active Substance: CYTARABINE
     Dosage: 3340 MG, 2X/DAY (Q12H)
     Route: 041
     Dates: start: 20240210, end: 20240210
  5. INVESTIGATIONAL PRODUCT [Suspect]
     Active Substance: INVESTIGATIONAL PRODUCT
     Indication: Acute myeloid leukaemia
     Dosage: UNK, 1X/DAY
     Route: 041
     Dates: start: 20231227, end: 20231227
  6. INVESTIGATIONAL PRODUCT [Suspect]
     Active Substance: INVESTIGATIONAL PRODUCT
     Dosage: UNK, Q12H
     Route: 041
     Dates: start: 20231228, end: 20240103
  7. INVESTIGATIONAL PRODUCT [Suspect]
     Active Substance: INVESTIGATIONAL PRODUCT
     Dosage: UNK, 1X/DAY
     Route: 041
     Dates: start: 20240205, end: 20240205
  8. INVESTIGATIONAL PRODUCT [Suspect]
     Active Substance: INVESTIGATIONAL PRODUCT
     Dosage: UNK, Q12H
     Route: 041
     Dates: start: 20240206, end: 20240212
  9. MITOXANTRONE [Concomitant]
     Active Substance: MITOXANTRONE HYDROCHLORIDE
     Indication: Acute myeloid leukaemia
     Dosage: 10 MG, 1X/DAY. 25/12.5 MILLIGRAM PER MILLILITRE
     Route: 041
     Dates: start: 20231228, end: 20240101
  10. ETOPOSIDE [Concomitant]
     Active Substance: ETOPOSIDE
     Indication: Acute myeloid leukaemia
     Dosage: 168 MG, 1X/DAY. 0.1/5 GRAM PER MILLILITRE
     Route: 041
     Dates: start: 20231228, end: 20231230

REACTIONS (3)
  - Electrolyte imbalance [Fatal]
  - Sepsis [Fatal]
  - Multiple organ dysfunction syndrome [Fatal]

NARRATIVE: CASE EVENT DATE: 20240303
